FAERS Safety Report 10024903 (Version 2)
Quarter: 2014Q2

REPORT INFORMATION
  Report Type: Report from Study
  Country: CA (occurrence: CA)
  Receive Date: 20140320
  Receipt Date: 20140519
  Transmission Date: 20141212
  Serious: Yes (Other)
  Sender: FDA-Public Use
  Company Number: CA-SA-2014SA032098

PATIENT
  Age: 64 Year
  Sex: Female
  Weight: 92 kg

DRUGS (14)
  1. FLUDARABINE PHOSPHATE [Suspect]
     Indication: CHRONIC LYMPHOCYTIC LEUKAEMIA
     Route: 042
     Dates: start: 2009
  2. CYCLOPHOSPHAMIDE [Suspect]
     Indication: CHRONIC LYMPHOCYTIC LEUKAEMIA
     Route: 042
     Dates: start: 2009
  3. RITUXAN [Suspect]
     Indication: CHRONIC LYMPHOCYTIC LEUKAEMIA
     Dosage: FORM: SOLUTION INTRAVENOUS
     Route: 042
     Dates: start: 20130704
  4. RITUXAN [Suspect]
     Indication: CHRONIC LYMPHOCYTIC LEUKAEMIA
     Route: 042
     Dates: start: 2009
  5. LUMILIXIMAB [Suspect]
     Indication: CHRONIC LYMPHOCYTIC LEUKAEMIA
     Route: 042
     Dates: start: 2009
  6. TYLENOL [Concomitant]
     Route: 048
     Dates: start: 20130704
  7. ATORVASTATIN CALCIUM [Concomitant]
  8. BENADRYL [Concomitant]
     Route: 048
     Dates: start: 20130704
  9. DOXORUBICIN [Concomitant]
     Dates: start: 20130321
  10. ELTROXIN [Concomitant]
  11. FLUCONAZOLE [Concomitant]
  12. SOLU-MEDROL [Concomitant]
     Route: 042
     Dates: start: 20130704
  13. PREDNISOLONE [Concomitant]
     Dates: start: 20130321
  14. VINCRISTINE [Concomitant]
     Dates: start: 20130321

REACTIONS (4)
  - Acquired gene mutation [Not Recovered/Not Resolved]
  - Arthralgia [Not Recovered/Not Resolved]
  - Heart rate increased [Not Recovered/Not Resolved]
  - Myalgia [Not Recovered/Not Resolved]
